FAERS Safety Report 7171764-1 (Version None)
Quarter: 2010Q4

REPORT INFORMATION
  Report Type: 
  Country: None (occurrence: None)
  Receive Date: 20101217
  Receipt Date: 20100127
  Transmission Date: 20110411
  Serious: No
  Sender: FDA-Public Use
  Company Number: US-AMGEN-KDL388856

PATIENT

DRUGS (3)
  1. ENBREL [Suspect]
     Indication: RHEUMATOID ARTHRITIS
     Dosage: 50 MG, QWK
     Route: 058
     Dates: start: 20100120
  2. HYDROXYCHLOROQUINE [Concomitant]
     Dosage: UNK UNK, UNK
     Dates: start: 20091202
  3. METHOTREXATE [Concomitant]
     Dosage: 2.5 MG, QD
     Dates: start: 20091202

REACTIONS (2)
  - FATIGUE [None]
  - SINUS HEADACHE [None]
